FAERS Safety Report 18264181 (Version 1)
Quarter: 2020Q3

REPORT INFORMATION
  Report Type: Spontaneous
  Country: US (occurrence: US)
  Receive Date: 20200914
  Receipt Date: 20200914
  Transmission Date: 20201103
  Serious: Yes (Death, Hospitalization, Other)
  Sender: FDA-Public Use
  Company Number: US-AMGEN-USASP2020146734

PATIENT

DRUGS (4)
  1. NEUPOGEN [Suspect]
     Active Substance: FILGRASTIM
     Indication: PROPHYLAXIS
     Dosage: 5 MICROGRAM/KILOGRAM
     Route: 065
  2. DIAZIQUONE. [Concomitant]
     Active Substance: DIAZIQUONE
     Dosage: 28 MILLIGRAM/SQ. METER
  3. DIAZIQUONE. [Concomitant]
     Active Substance: DIAZIQUONE
     Indication: ACUTE MYELOID LEUKAEMIA
     Dosage: 24 MILLIGRAM/SQ. METER
  4. MITOXANTRONE [Concomitant]
     Active Substance: MITOXANTRONE HYDROCHLORIDE
     Indication: ACUTE MYELOID LEUKAEMIA
     Dosage: 12 MILLIGRAM/SQ. METER

REACTIONS (5)
  - Death [Fatal]
  - Drug ineffective [Unknown]
  - Unevaluable event [Unknown]
  - Acute myeloid leukaemia recurrent [Unknown]
  - Infection [Unknown]
